FAERS Safety Report 20164320 (Version 1)
Quarter: 2021Q4

REPORT INFORMATION
  Report Type: Other
  Country: KR (occurrence: None)
  Receive Date: 20211209
  Receipt Date: 20211209
  Transmission Date: 20220303
  Serious: Yes (Other)
  Sender: FDA-Public Use
  Company Number: KR-ROCHE-2956403

PATIENT
  Age: 67 Year
  Sex: Male
  Weight: 51.1 kg

DRUGS (9)
  1. ATEZOLIZUMAB [Suspect]
     Active Substance: ATEZOLIZUMAB
     Indication: Non-small cell lung cancer metastatic
     Route: 041
     Dates: start: 20210101
  2. ATEZOLIZUMAB [Suspect]
     Active Substance: ATEZOLIZUMAB
     Route: 041
     Dates: start: 20210210
  3. ATEZOLIZUMAB [Suspect]
     Active Substance: ATEZOLIZUMAB
     Route: 041
     Dates: start: 20210305
  4. VAHELVA RESPIMAT [Concomitant]
     Indication: Chronic obstructive pulmonary disease
     Dates: start: 2020
  5. FEXONADINE [Concomitant]
     Dates: start: 2020
  6. ACETAMINOPHEN\TRAMADOL [Concomitant]
     Active Substance: ACETAMINOPHEN\TRAMADOL
     Indication: Cancer pain
     Dates: start: 2020
  7. SURFOLASE [Concomitant]
     Indication: Chronic obstructive pulmonary disease
  8. LAFUTIDINE [Concomitant]
     Active Substance: LAFUTIDINE
  9. MAGMIL S [Concomitant]

REACTIONS (2)
  - Decreased appetite [Recovered/Resolved]
  - Oesophageal candidiasis [Recovered/Resolved]

NARRATIVE: CASE EVENT DATE: 20210103
